FAERS Safety Report 20312413 (Version 1)
Quarter: 2022Q1

REPORT INFORMATION
  Report Type: Spontaneous
  Country: US (occurrence: None)
  Receive Date: 20220107
  Receipt Date: 20220107
  Transmission Date: 20220424
  Serious: Yes (Hospitalization)
  Sender: FDA-Public Use
  Company Number: None

PATIENT
  Age: 68 Year
  Sex: Male
  Weight: 76.5 kg

DRUGS (8)
  1. SOTROVIMAB [Suspect]
     Active Substance: SOTROVIMAB
     Indication: SARS-CoV-2 test positive
     Dates: start: 20220106, end: 20220106
  2. JANUVIA [Concomitant]
     Active Substance: SITAGLIPTIN PHOSPHATE
  3. ALLUPURINOL [Concomitant]
  4. ESCITALOPRAM [Concomitant]
     Active Substance: ESCITALOPRAM OXALATE
  5. COLCHICINE [Concomitant]
     Active Substance: COLCHICINE
  6. MELATONIN [Concomitant]
     Active Substance: MELATONIN
  7. CARBIDOPA\LEVODOPA [Concomitant]
     Active Substance: CARBIDOPA\LEVODOPA
  8. GLUCOMETER [Concomitant]

REACTIONS (6)
  - Asthenia [None]
  - Dysstasia [None]
  - Tremor [None]
  - Chills [None]
  - Fatigue [None]
  - Pyrexia [None]

NARRATIVE: CASE EVENT DATE: 20220106
